FAERS Safety Report 11059407 (Version 1)
Quarter: 2015Q2

REPORT INFORMATION
  Report Type: Spontaneous
  Country: JP (occurrence: JP)
  Receive Date: 20150423
  Receipt Date: 20150423
  Transmission Date: 20150821
  Serious: Yes (Death, Hospitalization)
  Sender: FDA-Public Use
  Company Number: JP-CIPLA LTD.-2015JP03240

PATIENT

DRUGS (3)
  1. CARBOPLATIN. [Suspect]
     Active Substance: CARBOPLATIN
     Indication: LUNG ADENOCARCINOMA STAGE III
     Dosage: AREA UNDER THE CURVE 5
     Route: 065
  2. PEMETREXED [Suspect]
     Active Substance: PEMETREXED
     Indication: LUNG ADENOCARCINOMA STAGE III
     Dosage: 500 MG/M 2
     Route: 065
  3. MGLITOL [Suspect]
     Active Substance: MIGLITOL
     Indication: LUNG ADENOCARCINOMA STAGE III
     Dosage: 150 MG, QD
     Route: 065

REACTIONS (8)
  - Abdominal distension [Unknown]
  - Heart rate increased [None]
  - Portal venous gas [Unknown]
  - Sepsis [Fatal]
  - Vomiting [None]
  - Multi-organ failure [Fatal]
  - Gastrointestinal necrosis [Unknown]
  - Diarrhoea [Unknown]
